FAERS Safety Report 10504978 (Version 1)
Quarter: 2014Q3

REPORT INFORMATION
  Report Type: Spontaneous
  Country: US (occurrence: None)
  Receive Date: 20140915
  Receipt Date: 20140915
  Transmission Date: 20150326
  Serious: Yes (Other)
  Sender: FDA-Public Use
  Company Number: 2012SGN00579

PATIENT
  Age: 33 Year
  Sex: Male
  Weight: 63.5 kg

DRUGS (3)
  1. ADCETRIS [Suspect]
     Active Substance: BRENTUXIMAB VEDOTIN
     Indication: HODGKIN^S DISEASE
     Dosage: 150MG, SINGLE, INTRAVENOUS
     Route: 042
     Dates: start: 20121203, end: 20121203
  2. ZOFTRAN [Concomitant]
  3. DECADRON [Concomitant]
     Active Substance: DEXAMETHASONE

REACTIONS (1)
  - Rash [None]

NARRATIVE: CASE EVENT DATE: 20121206
